FAERS Safety Report 24595522 (Version 2)
Quarter: 2024Q4

REPORT INFORMATION
  Report Type: Report from Study
  Country: ES (occurrence: ES)
  Receive Date: 20241109
  Receipt Date: 20241217
  Transmission Date: 20250114
  Serious: Yes (Hospitalization, Other)
  Sender: ABBVIE
  Company Number: ES-ABBVIE-5993387

PATIENT
  Age: 79 Year
  Sex: Male

DRUGS (2)
  1. CARBIDOPA\LEVODOPA [Suspect]
     Active Substance: CARBIDOPA\LEVODOPA
     Indication: Parkinson^s disease
     Route: 050
     Dates: start: 20201022
  2. CARBIDOPA\LEVODOPA [Suspect]
     Active Substance: CARBIDOPA\LEVODOPA

REACTIONS (8)
  - Fall [Recovered/Resolved]
  - Gait disturbance [Unknown]
  - Cerebral haemorrhage [Recovering/Resolving]
  - Fall [Unknown]
  - Hallucination, visual [Unknown]
  - Syncope [Unknown]
  - Psychomotor hyperactivity [Unknown]
  - Aggression [Unknown]

NARRATIVE: CASE EVENT DATE: 20240101
